FAERS Safety Report 7867413-7 (Version None)
Quarter: 2011Q4

REPORT INFORMATION
  Report Type: 
  Country: None (occurrence: None)
  Receive Date: 20111028
  Receipt Date: 20111019
  Transmission Date: 20120403
  Serious: Yes (Other)
  Sender: FDA-Public Use
  Company Number: US-BAYER-201012558NA

PATIENT
  Age: 35 Year
  Sex: Female
  Weight: 74 kg

DRUGS (12)
  1. PROMETHAZINE HCL [Concomitant]
  2. YASMIN [Suspect]
  3. NEXIUM [Concomitant]
  4. GAS X [Concomitant]
  5. DROSPIRENONE AND ETHINYL ESTRADIOL [Suspect]
  6. VITAMIN B COMPLEX CAP [Concomitant]
  7. YAZ [Suspect]
     Indication: PREMENSTRUAL SYNDROME
     Dosage: PFS: +#8220;RECEIVED SAMPLES ALMOST THE WHOLE TIME ON YAZ 2007 TO 2009, 3 MONTHS AT A TIME+#8221;
     Dates: start: 20071026, end: 20090716
  8. ASCORBIC ACID [Concomitant]
  9. CALCIUM +VIT D [Concomitant]
  10. YAZ [Suspect]
  11. XANAX [Concomitant]
  12. NAPROXEN [Concomitant]
     Dosage: UNK
     Dates: start: 20080709

REACTIONS (1)
  - CHOLECYSTITIS CHRONIC [None]
